FAERS Safety Report 8770831 (Version 2)
Quarter: 2012Q4

REPORT INFORMATION
  Report Type: 
  Country: BR (occurrence: BR)
  Receive Date: 20120906
  Receipt Date: 20120910
  Transmission Date: 20130627
  Serious: Yes (Other)
  Sender: FDA-Public Use
  Company Number: BR-SANOFI-AVENTIS-2012SA063750

PATIENT
  Age: 21 Year
  Sex: Female

DRUGS (1)
  1. LASIX [Suspect]
     Indication: SWELLING NOS
     Route: 065

REACTIONS (2)
  - Vaginal haemorrhage [Unknown]
  - Pain [Unknown]
